FAERS Safety Report 23375323 (Version 2)
Quarter: 2024Q1

REPORT INFORMATION
  Report Type: Other
  Country: US (occurrence: US)
  Receive Date: 20240106
  Receipt Date: 20240305
  Transmission Date: 20240410
  Serious: Yes (Other)
  Sender: FDA-Public Use
  Company Number: US-SIGA Technologies, Inc.-2150251

PATIENT
  Age: 36 Year
  Sex: Male

DRUGS (2)
  1. TPOXX [Suspect]
     Active Substance: TECOVIRIMAT
     Route: 048
  2. antiretroviral therapy (ART) [Concomitant]

REACTIONS (1)
  - Drug resistance [Unknown]
